FAERS Safety Report 19925768 (Version 1)
Quarter: 2021Q4

REPORT INFORMATION
  Report Type: Report from Study
  Country: None (occurrence: CA)
  Receive Date: 20211007
  Receipt Date: 20211007
  Transmission Date: 20220303
  Serious: Yes (Other)
  Sender: FDA-Public Use
  Company Number: CA-ABBVIE-20K-028-3637697-00

PATIENT
  Age: 35 Year
  Sex: Female

DRUGS (3)
  1. HUMIRA [Suspect]
     Active Substance: ADALIMUMAB
     Indication: Hidradenitis
     Route: 058
     Dates: start: 20181224
  2. HUMIRA [Suspect]
     Active Substance: ADALIMUMAB
     Route: 058
  3. RIFAMPIN [Suspect]
     Active Substance: RIFAMPIN
     Indication: Hidradenitis
     Route: 065
     Dates: start: 202103

REACTIONS (6)
  - Ulcer [Not Recovered/Not Resolved]
  - Cyst [Not Recovered/Not Resolved]
  - Feeling abnormal [Unknown]
  - Hidradenitis [Not Recovered/Not Resolved]
  - Impaired healing [Unknown]
  - Injection site pain [Unknown]

NARRATIVE: CASE EVENT DATE: 20201001
